FAERS Safety Report 5361358-2 (Version None)
Quarter: 2007Q2

REPORT INFORMATION
  Report Type: 
  Country: None (occurrence: None)
  Receive Date: 20070612
  Receipt Date: 20070530
  Transmission Date: 20071010
  Serious: Yes (Other)
  Sender: FDA-Public Use
  Company Number: S07-CAN-02499-01

PATIENT
  Age: 55 Year
  Sex: Female

DRUGS (5)
  1. CELEXA [Suspect]
     Dosage: 40 MG QD PO
     Route: 048
  2. CITALOPRAM HYDROBROMIDE [Suspect]
     Dosage: 40 MG QD PO
     Route: 048
  3. CESAMET [Concomitant]
  4. DICLOFENAC [Concomitant]
  5. LECTOPAM (BROMAZEPAM) [Concomitant]

REACTIONS (2)
  - ATRIOVENTRICULAR BLOCK [None]
  - HEART RATE DECREASED [None]
